FAERS Safety Report 16895367 (Version 1)
Quarter: 2019Q4

REPORT INFORMATION
  Report Type: Spontaneous
  Country: US (occurrence: US)
  Receive Date: 20191007
  Receipt Date: 20191007
  Transmission Date: 20200122
  Serious: Yes (Hospitalization)
  Sender: FDA-Public Use
  Company Number: None

PATIENT
  Age: 41 Year

DRUGS (1)
  1. EMGALITY [Suspect]
     Active Substance: GALCANEZUMAB-GNLM
     Indication: MIGRAINE
     Dosage: ?          OTHER FREQUENCY:ONCE;?
     Route: 058
     Dates: start: 20190920

REACTIONS (5)
  - Urinary tract disorder [None]
  - Taste disorder [None]
  - Hypersensitivity [None]
  - Paraesthesia [None]
  - Defaecation disorder [None]

NARRATIVE: CASE EVENT DATE: 20191004
